FAERS Safety Report 6795357-0 (Version None)
Quarter: 2010Q2

REPORT INFORMATION
  Report Type: 
  Country: None (occurrence: None)
  Receive Date: 20100520
  Receipt Date: 20090707
  Transmission Date: 20101027
  Serious: Yes (Other)
  Sender: FDA-Public Use
  Company Number: 2009238255

PATIENT
  Age: 58 Year
  Sex: Female
  Weight: 59 kg

DRUGS (10)
  1. PROVERA [Suspect]
     Indication: HORMONE REPLACEMENT THERAPY
     Dosage: 5 MG, ORAL
     Route: 048
     Dates: start: 19880101, end: 19960904
  2. PREMARIN [Suspect]
     Indication: HORMONE REPLACEMENT THERAPY
     Dosage: 0.625 MG
     Dates: start: 19880101, end: 19960904
  3. PREMPRO [Suspect]
     Indication: HORMONE REPLACEMENT THERAPY
     Dosage: 0.625/2.5MG ; 0.625/2.5MG ; 1.25/5MG
     Dates: start: 19960904, end: 19970506
  4. PREMPRO [Suspect]
     Indication: HORMONE REPLACEMENT THERAPY
     Dosage: 0.625/2.5MG ; 0.625/2.5MG ; 1.25/5MG
     Dates: start: 19970506, end: 19970903
  5. PREMPRO [Suspect]
     Indication: HORMONE REPLACEMENT THERAPY
     Dosage: 0.625/2.5MG ; 0.625/2.5MG ; 1.25/5MG
     Dates: start: 19970903, end: 19980326
  6. ALPRAZOLAM [Concomitant]
  7. CYCLOBENZAPRINE [Concomitant]
  8. LORAZEPAM [Concomitant]
  9. DESYREL [Concomitant]
  10. ZYRTEC [Concomitant]

REACTIONS (1)
  - BREAST CANCER FEMALE [None]
